FAERS Safety Report 6861945-6 (Version None)
Quarter: 2010Q3

REPORT INFORMATION
  Report Type: 
  Country: None (occurrence: None)
  Receive Date: 20100720
  Receipt Date: 20100720
  Transmission Date: 20110219
  Serious: Yes (Hospitalization)
  Sender: FDA-Public Use
  Company Number: None

PATIENT
  Age: 64 Year
  Sex: Male
  Weight: 68.5 kg

DRUGS (1)
  1. VANCOMYCIN [Suspect]
     Indication: IMPLANT SITE INFECTION
     Dosage: 1250 MG OTHER IV
     Route: 042
     Dates: start: 20100623, end: 20100624

REACTIONS (1)
  - THROMBOCYTOPENIA [None]
